FAERS Safety Report 8214151-7 (Version None)
Quarter: 2012Q1

REPORT INFORMATION
  Report Type: 
  Country: None (occurrence: None)
  Receive Date: 20120316
  Receipt Date: 20120309
  Transmission Date: 20120608
  Serious: Yes (Hospitalization)
  Sender: FDA-Public Use
  Company Number: PL-AMGEN-POLCT2012015317

PATIENT
  Age: 85 Year
  Sex: Female

DRUGS (9)
  1. LUCETAM [Concomitant]
  2. BISOPROLOL FUMARATE [Concomitant]
     Dosage: 5 MG, UNK
  3. RAMIPRIL [Concomitant]
     Dosage: 5 MG, UNK
  4. ESTAZOLAM [Concomitant]
  5. TIALORID [Concomitant]
     Dosage: UNK
  6. CLORANXEN [Concomitant]
  7. CORATOR [Concomitant]
     Dosage: 20 MG, UNK
  8. ASPIRIN [Concomitant]
     Dosage: 75 MG, UNK
  9. XGEVA [Suspect]
     Indication: OSTEOPOROSIS POSTMENOPAUSAL
     Dosage: 1 ML, Q6MO
     Route: 058
     Dates: start: 20080211

REACTIONS (4)
  - CEREBRAL ARTERIOSCLEROSIS [None]
  - HYPERTENSION [None]
  - DEPRESSION [None]
  - HYPOXIC-ISCHAEMIC ENCEPHALOPATHY [None]
